FAERS Safety Report 6019717-0 (Version None)
Quarter: 2008Q4

REPORT INFORMATION
  Report Type: 
  Country: None (occurrence: None)
  Receive Date: 20081222
  Receipt Date: 20081003
  Transmission Date: 20090506
  Serious: No
  Sender: FDA-Public Use
  Company Number: US-WYE-H06261008

PATIENT
  Age: 54 Year
  Sex: Female
  Weight: 86.26 kg

DRUGS (9)
  1. PRISTIQ [Suspect]
     Indication: DEPRESSION
     Dosage: 50 MG 1X PER 1 DAY, ORAL
     Route: 048
     Dates: start: 20080901
  2. TRAZODONE HCL [Concomitant]
  3. LASIX [Concomitant]
  4. LIPITOR [Concomitant]
  5. PREVACID [Concomitant]
  6. ACETYLSALICYLIC ACID SRT [Concomitant]
  7. LEVOTHYROXINE SODIUM [Concomitant]
  8. POTASSIUM (POTASSIUM) [Concomitant]
  9. IMDUR [Concomitant]

REACTIONS (2)
  - HEADACHE [None]
  - TREMOR [None]
